FAERS Safety Report 6725063-X (Version None)
Quarter: 2010Q2

REPORT INFORMATION
  Report Type: 
  Country: None (occurrence: None)
  Receive Date: 20100514
  Receipt Date: 20100413
  Transmission Date: 20101027
  Serious: No
  Sender: FDA-Public Use
  Company Number: US-BAYER-201019975NA

PATIENT
  Age: 74 Year
  Sex: Female
  Weight: 63 kg

DRUGS (3)
  1. ULTRAVIST 370 [Suspect]
     Indication: COMPUTERISED TOMOGRAM ABDOMEN
     Dosage: TOTAL DAILY DOSE: 80 ML  UNIT DOSE: 500 ML
     Route: 042
     Dates: start: 20100413, end: 20100413
  2. ULTRAVIST 370 [Suspect]
     Route: 048
     Dates: start: 20100413, end: 20100413
  3. METFORMIN HYDROCHLORIDE [Concomitant]

REACTIONS (4)
  - EYELID OEDEMA [None]
  - NASAL CONGESTION [None]
  - SNEEZING [None]
  - THROAT IRRITATION [None]
